FAERS Safety Report 6109218-3 (Version None)
Quarter: 2009Q1

REPORT INFORMATION
  Report Type: 
  Country: None (occurrence: None)
  Receive Date: 20090306
  Receipt Date: 20090224
  Transmission Date: 20090719
  Serious: Yes (Hospitalization)
  Sender: FDA-Public Use
  Company Number: DSA_33286_2009

PATIENT
  Age: 78 Year
  Sex: Female

DRUGS (3)
  1. TEMESTA /00273201/ (TEMESTA - LORAZEPAM) 2.5 MG (NOT SPECIFIED) [Suspect]
     Indication: DRUG USE FOR UNKNOWN INDICATION
     Dosage: (2.5 MG QD)
  2. LEXOTANIL (LEXOTANIL - BROMAZEPAM) (NOT SPECIFIED) [Suspect]
     Indication: DRUG USE FOR UNKNOWN INDICATION
     Dosage: (3 MG PRN)
  3. VIVIMED /00056301/ [Concomitant]

REACTIONS (2)
  - DIZZINESS [None]
  - FALL [None]
